FAERS Safety Report 13165539 (Version 1)
Quarter: 2017Q1

REPORT INFORMATION
  Report Type: Report from Study
  Country: JP (occurrence: JP)
  Receive Date: 20170131
  Receipt Date: 20170131
  Transmission Date: 20170428
  Serious: Yes (Death, Hospitalization, Other)
  Sender: FDA-Public Use
  Company Number: JP-ROCHE-1885306

PATIENT
  Age: 71 Year
  Sex: Male

DRUGS (59)
  1. BLINDED IBRUTINIB [Suspect]
     Active Substance: IBRUTINIB
     Indication: DIFFUSE LARGE B-CELL LYMPHOMA
     Route: 048
     Dates: start: 20150703, end: 20151119
  2. DOXORUBICIN HYDROCHLORIDE. [Suspect]
     Active Substance: DOXORUBICIN HYDROCHLORIDE
     Indication: DIFFUSE LARGE B-CELL LYMPHOMA
     Route: 042
     Dates: start: 20150703, end: 20151104
  3. CYTOTEC [Concomitant]
     Active Substance: MISOPROSTOL
     Indication: PREMEDICATION
     Route: 048
     Dates: start: 20150703, end: 20150703
  4. CYTOTEC [Concomitant]
     Active Substance: MISOPROSTOL
     Route: 048
     Dates: start: 20151009, end: 20151009
  5. SOLU-CORTEF [Concomitant]
     Active Substance: HYDROCORTISONE SODIUM SUCCINATE
     Route: 042
     Dates: start: 20150814, end: 20150814
  6. ALOXI [Concomitant]
     Active Substance: PALONOSETRON HYDROCHLORIDE
     Indication: PREMEDICATION
     Route: 042
     Dates: start: 20150704, end: 20150704
  7. CEFAZOLIN [Concomitant]
     Active Substance: CEFAZOLIN
     Indication: INFECTION PROPHYLAXIS
     Route: 042
     Dates: start: 20150904, end: 20150904
  8. CEFTRIAXONE. [Concomitant]
     Active Substance: CEFTRIAXONE
     Indication: PROPHYLAXIS
     Dosage: INDICATION: INFECTION DISEASE PROPHYLAXIS
     Route: 042
     Dates: start: 20150928, end: 20150930
  9. G-LASTA [Concomitant]
     Active Substance: PEGFILGRASTIM
     Route: 058
     Dates: start: 20150921, end: 20150921
  10. RESTAMIN KOWA [Concomitant]
     Route: 048
     Dates: start: 20150917, end: 20150917
  11. LOXOPROFEN NA [Concomitant]
     Active Substance: LOXOPROFEN SODIUM
     Route: 048
     Dates: start: 20150814, end: 20150814
  12. CYTOTEC [Concomitant]
     Active Substance: MISOPROSTOL
     Route: 048
     Dates: start: 20150724, end: 20150724
  13. SOLU-CORTEF [Concomitant]
     Active Substance: HYDROCORTISONE SODIUM SUCCINATE
     Route: 042
     Dates: start: 20150724, end: 20150724
  14. POTACOL R [Concomitant]
     Indication: FLUID REPLACEMENT
     Route: 042
     Dates: start: 20150713, end: 20150716
  15. MINOCYCLINE HYDROCHLORIDE. [Concomitant]
     Active Substance: MINOCYCLINE HYDROCHLORIDE
     Route: 048
     Dates: start: 20150928, end: 20151002
  16. LEVOFLOXACIN. [Concomitant]
     Active Substance: LEVOFLOXACIN
     Route: 048
     Dates: start: 20150925, end: 20151001
  17. VFEND [Concomitant]
     Active Substance: VORICONAZOLE
     Dosage: INDICATION: PREVENTION OF PNEUMONIA
     Route: 048
     Dates: start: 20151016, end: 20151019
  18. RITUXIMAB [Suspect]
     Active Substance: RITUXIMAB
     Indication: DIFFUSE LARGE B-CELL LYMPHOMA
     Route: 042
     Dates: start: 20150703, end: 20151104
  19. CYCLOPHOSPHAMIDE MONOHYDRATE [Suspect]
     Active Substance: CYCLOPHOSPHAMIDE
     Indication: DIFFUSE LARGE B-CELL LYMPHOMA
     Route: 042
     Dates: start: 20150703, end: 20151104
  20. VINCRISTINE SULFATE. [Suspect]
     Active Substance: VINCRISTINE SULFATE
     Indication: DIFFUSE LARGE B-CELL LYMPHOMA
     Route: 042
     Dates: start: 20150703, end: 20151104
  21. RESTAMIN KOWA [Concomitant]
     Route: 048
     Dates: start: 20151030, end: 20151030
  22. LOXOPROFEN NA [Concomitant]
     Active Substance: LOXOPROFEN SODIUM
     Indication: PREMEDICATION
     Route: 048
     Dates: start: 20150703, end: 20150703
  23. ALOXI [Concomitant]
     Active Substance: PALONOSETRON HYDROCHLORIDE
     Route: 042
     Dates: start: 20150815, end: 20150815
  24. VFEND [Concomitant]
     Active Substance: VORICONAZOLE
     Dosage: INDICATION: PREVENTION OF PNEUMONIA
     Route: 048
     Dates: start: 20151009, end: 20151016
  25. G-LASTA [Concomitant]
     Active Substance: PEGFILGRASTIM
     Route: 058
     Dates: start: 20151102, end: 20151102
  26. RESTAMIN KOWA [Concomitant]
     Indication: PREMEDICATION
     Route: 048
     Dates: start: 20150703, end: 20150703
  27. LOXOPROFEN NA [Concomitant]
     Active Substance: LOXOPROFEN SODIUM
     Route: 048
     Dates: start: 20150724, end: 20150724
  28. SOLU-CORTEF [Concomitant]
     Active Substance: HYDROCORTISONE SODIUM SUCCINATE
     Route: 042
     Dates: start: 20151030, end: 20151030
  29. ALOXI [Concomitant]
     Active Substance: PALONOSETRON HYDROCHLORIDE
     Route: 042
     Dates: start: 20150918, end: 20150918
  30. ALOXI [Concomitant]
     Active Substance: PALONOSETRON HYDROCHLORIDE
     Route: 042
     Dates: start: 20151031, end: 20151031
  31. MINOCYCLINE HYDROCHLORIDE. [Concomitant]
     Active Substance: MINOCYCLINE HYDROCHLORIDE
     Indication: INFECTION PROPHYLAXIS
     Route: 048
     Dates: start: 20150807, end: 20150813
  32. RESTAMIN KOWA [Concomitant]
     Route: 048
     Dates: start: 20151009, end: 20151009
  33. CYTOTEC [Concomitant]
     Active Substance: MISOPROSTOL
     Route: 048
     Dates: start: 20150814, end: 20150814
  34. SOLU-CORTEF [Concomitant]
     Active Substance: HYDROCORTISONE SODIUM SUCCINATE
     Route: 042
     Dates: start: 20150917, end: 20150917
  35. ALOXI [Concomitant]
     Active Substance: PALONOSETRON HYDROCHLORIDE
     Route: 042
     Dates: start: 20151010, end: 20151010
  36. SOSEGON [Concomitant]
     Active Substance: PENTAZOCINE
     Indication: PAIN PROPHYLAXIS
     Route: 030
     Dates: start: 20150904, end: 20150904
  37. G-LASTA [Concomitant]
     Active Substance: PEGFILGRASTIM
     Indication: PROPHYLAXIS
     Route: 058
     Dates: start: 20150727, end: 20150727
  38. PREDNISOLONE. [Suspect]
     Active Substance: PREDNISOLONE
     Indication: DIFFUSE LARGE B-CELL LYMPHOMA
     Route: 065
     Dates: start: 20150703, end: 20151104
  39. ARCRANE [Concomitant]
     Route: 048
     Dates: start: 20150702
  40. NEXIUM [Concomitant]
     Active Substance: ESOMEPRAZOLE MAGNESIUM
     Indication: GASTRITIS PROPHYLAXIS
     Route: 048
     Dates: start: 20150702, end: 20160122
  41. DAIPHEN [Concomitant]
     Active Substance: SULFAMETHOXAZOLE\TRIMETHOPRIM
     Indication: INFECTION PROPHYLAXIS
     Route: 048
     Dates: start: 20150703
  42. RESTAMIN KOWA [Concomitant]
     Route: 048
     Dates: start: 20150814, end: 20150814
  43. LOXOPROFEN NA [Concomitant]
     Active Substance: LOXOPROFEN SODIUM
     Route: 048
     Dates: start: 20150917, end: 20150917
  44. CYTOTEC [Concomitant]
     Active Substance: MISOPROSTOL
     Route: 048
     Dates: start: 20150917, end: 20150917
  45. SOLU-CORTEF [Concomitant]
     Active Substance: HYDROCORTISONE SODIUM SUCCINATE
     Route: 042
     Dates: start: 20151009, end: 20151009
  46. MINOCYCLINE HYDROCHLORIDE. [Concomitant]
     Active Substance: MINOCYCLINE HYDROCHLORIDE
     Route: 048
     Dates: start: 20151109, end: 20151119
  47. ATARAX-P [Concomitant]
     Active Substance: HYDROXYZINE HYDROCHLORIDE
     Indication: PROPHYLAXIS OF NAUSEA AND VOMITING
     Route: 030
     Dates: start: 20150904, end: 20150904
  48. G-LASTA [Concomitant]
     Active Substance: PEGFILGRASTIM
     Route: 058
     Dates: start: 20151012, end: 20151012
  49. ARCRANE [Concomitant]
     Indication: EROSIVE OESOPHAGITIS
     Route: 048
     Dates: start: 20150612, end: 20150625
  50. TSUMURA HANGESHASHINTO [Concomitant]
     Active Substance: HERBALS
     Indication: EROSIVE OESOPHAGITIS
     Route: 048
     Dates: start: 20150612, end: 20150626
  51. LOXOPROFEN NA [Concomitant]
     Active Substance: LOXOPROFEN SODIUM
     Route: 048
     Dates: start: 20151030, end: 20151030
  52. CYTOTEC [Concomitant]
     Active Substance: MISOPROSTOL
     Route: 048
     Dates: start: 20151030, end: 20151030
  53. SOLU-CORTEF [Concomitant]
     Active Substance: HYDROCORTISONE SODIUM SUCCINATE
     Indication: PREMEDICATION
     Route: 042
     Dates: start: 20150703, end: 20150703
  54. G-LASTA [Concomitant]
     Active Substance: PEGFILGRASTIM
     Route: 058
     Dates: start: 20150817, end: 20150817
  55. RESTAMIN KOWA [Concomitant]
     Route: 048
     Dates: start: 20150724, end: 20150724
  56. LOXOPROFEN NA [Concomitant]
     Active Substance: LOXOPROFEN SODIUM
     Route: 048
     Dates: start: 20151009, end: 20151009
  57. SOLU-CORTEF [Concomitant]
     Active Substance: HYDROCORTISONE SODIUM SUCCINATE
     Route: 042
     Dates: start: 20150704, end: 20150704
  58. ALOXI [Concomitant]
     Active Substance: PALONOSETRON HYDROCHLORIDE
     Route: 042
     Dates: start: 20150725, end: 20150725
  59. LEVOFLOXACIN. [Concomitant]
     Active Substance: LEVOFLOXACIN
     Indication: INFECTION PROPHYLAXIS
     Route: 048
     Dates: start: 20150905, end: 20150909

REACTIONS (6)
  - Neutrophil count decreased [Recovered/Resolved]
  - Retinal detachment [Recovering/Resolving]
  - Lymphocyte count decreased [Recovered/Resolved]
  - Angioimmunoblastic T-cell lymphoma [Fatal]
  - Alopecia [Recovering/Resolving]
  - White blood cell count decreased [Recovered/Resolved]

NARRATIVE: CASE EVENT DATE: 20150710
